FAERS Safety Report 13097829 (Version 1)
Quarter: 2017Q1

REPORT INFORMATION
  Report Type: Spontaneous
  Country: US (occurrence: US)
  Receive Date: 20170109
  Receipt Date: 20170109
  Transmission Date: 20170428
  Serious: Yes (Life-Threatening, Hospitalization)
  Sender: FDA-Public Use
  Company Number: None

PATIENT
  Age: 70 Year
  Sex: Female
  Weight: 49.5 kg

DRUGS (8)
  1. RECLAST [Suspect]
     Active Substance: ZOLEDRONIC ACID
     Indication: OSTEOPOROSIS
     Dosage: ?          OTHER FREQUENCY:YEARLY;?
     Route: 042
     Dates: start: 20161212, end: 20161212
  2. VITAMIN D [Concomitant]
     Active Substance: CHOLECALCIFEROL
  3. ZETIA [Concomitant]
     Active Substance: EZETIMIBE
  4. COUMADIN [Concomitant]
     Active Substance: WARFARIN SODIUM
  5. HYDROCHLOROTHIAZIDE. [Concomitant]
     Active Substance: HYDROCHLOROTHIAZIDE
  6. TYLENOL [Concomitant]
     Active Substance: ACETAMINOPHEN
  7. LISINOPRIL. [Concomitant]
     Active Substance: LISINOPRIL
  8. PEPSID [Concomitant]

REACTIONS (2)
  - Deep vein thrombosis [None]
  - Pulmonary embolism [None]

NARRATIVE: CASE EVENT DATE: 20161222
